FAERS Safety Report 15425040 (Version 1)
Quarter: 2018Q4

REPORT INFORMATION
  Report Type: Spontaneous
  Country: US (occurrence: US)
  Receive Date: 20180925
  Receipt Date: 20180925
  Transmission Date: 20190204
  Serious: No
  Sender: FDA-Public Use
  Company Number: US-THERAPEUTICSMD-2018TMD00058

PATIENT
  Sex: Female
  Weight: 86.17 kg

DRUGS (6)
  1. TOLTERODINE [Concomitant]
     Active Substance: TOLTERODINE
  2. CITALOPRAM [Concomitant]
     Active Substance: CITALOPRAM HYDROBROMIDE
  3. SIMVASTATIN. [Concomitant]
     Active Substance: SIMVASTATIN
  4. IMVEXXY [Suspect]
     Active Substance: ESTRADIOL
     Indication: ATROPHIC VULVOVAGINITIS
     Dosage: 10 ?G, 1X/DAY
     Route: 067
     Dates: start: 201807, end: 2018
  5. IMVEXXY [Suspect]
     Active Substance: ESTRADIOL
     Indication: INCONTINENCE
     Dosage: 10 ?G, 2X/WEEK
     Route: 067
     Dates: start: 2018, end: 20180804
  6. LEVOTHYROXINE. [Concomitant]
     Active Substance: LEVOTHYROXINE
     Dosage: 0.05 MG, UNK

REACTIONS (7)
  - Vulvovaginal discomfort [Recovering/Resolving]
  - Fungal infection [Recovered/Resolved]
  - Vulvovaginal pain [Recovering/Resolving]
  - Vulvovaginal inflammation [Recovering/Resolving]
  - Atrophic vulvovaginitis [Recovering/Resolving]
  - Vaginal disorder [Recovered/Resolved]
  - Vaginal laceration [Recovering/Resolving]

NARRATIVE: CASE EVENT DATE: 2018
